FAERS Safety Report 7956078-1 (Version None)
Quarter: 2011Q4

REPORT INFORMATION
  Report Type: 
  Country: None (occurrence: None)
  Receive Date: 20111205
  Receipt Date: 20111201
  Transmission Date: 20120403
  Serious: No
  Sender: FDA-Public Use
  Company Number: US-PFIZER INC-2011281830

PATIENT
  Sex: Male

DRUGS (12)
  1. ZYRTEC [Concomitant]
     Dosage: 5 MG, UNK
  2. LOMOTIL [Concomitant]
     Dosage: 2.5 MG, UNK
  3. ESOMEPRAZOLE MAGNESIUM/NAPROXEN [Concomitant]
  4. CENTRUM CARDIO [Concomitant]
  5. ZOLOFT [Concomitant]
     Dosage: 25 MG, UNK
  6. HYDRALAZINE [Concomitant]
     Dosage: 10 MG, UNK
  7. SUTENT [Suspect]
     Dosage: 12.5 MG CAPSULE TO TAKE 1 CAPSULE BY MOUTH DAILY FOR 2 WEEKS ON, THEN 1 WEEK OFF.
     Route: 048
  8. ZOMETA [Concomitant]
     Dosage: 4MG/5 ML
  9. OMEGA 3-6-9 [Concomitant]
  10. AMLODIPINE BESYLATE AND VALSARTAN [Concomitant]
     Dosage: 10-160 MG
  11. TOPROL-XL [Concomitant]
     Dosage: 200 MG, UNK
  12. BLEPHAMIDE [Concomitant]

REACTIONS (2)
  - ALLERGIC SINUSITIS [None]
  - SPUTUM DISCOLOURED [None]
